FAERS Safety Report 11813119 (Version 2)
Quarter: 2015Q4

REPORT INFORMATION
  Report Type: Not Available
  Country: CA (occurrence: CA)
  Receive Date: 20151209
  Receipt Date: 20151228
  Transmission Date: 20160305
  Serious: Yes (Hospitalization)
  Sender: FDA-Public Use
  Company Number: CA-BEH-2015056538

PATIENT
  Age: 55 Year
  Sex: Female
  Weight: 91 kg

DRUGS (7)
  1. LYRICA [Concomitant]
     Active Substance: PREGABALIN
  2. SENOKOT [Concomitant]
     Active Substance: SENNOSIDES
  3. PRIVIGEN [Suspect]
     Active Substance: HUMAN IMMUNOGLOBULIN G
     Route: 042
  4. TYLENOL [Concomitant]
     Active Substance: ACETAMINOPHEN
  5. COLACE [Concomitant]
     Active Substance: DOCUSATE SODIUM
  6. HEPARIN SODIUM. [Concomitant]
     Active Substance: HEPARIN SODIUM
     Dosage: SOLUTION INTRAVENOUS
  7. PRIVIGEN [Suspect]
     Active Substance: HUMAN IMMUNOGLOBULIN G
     Indication: GUILLAIN-BARRE SYNDROME
     Route: 065

REACTIONS (5)
  - Neutrophil count decreased [Unknown]
  - Pyrexia [Unknown]
  - Chest pain [Unknown]
  - Headache [Unknown]
  - Staphylococcal infection [Unknown]
